FAERS Safety Report 24458467 (Version 1)
Quarter: 2024Q4

REPORT INFORMATION
  Report Type: Spontaneous
  Country: PT (occurrence: PT)
  Receive Date: 20241018
  Receipt Date: 20241018
  Transmission Date: 20250115
  Serious: No
  Sender: ROCHE
  Company Number: PT-ROCHE-3516667

PATIENT
  Age: 83 Year
  Sex: Female

DRUGS (5)
  1. RITUXIMAB [Suspect]
     Active Substance: RITUXIMAB
     Indication: Haemolytic anaemia
     Route: 065
  2. METHOTREXATE [Concomitant]
     Active Substance: METHOTREXATE
  3. SULFASALAZINE [Concomitant]
     Active Substance: SULFASALAZINE
  4. PREDNISOLONE [Concomitant]
     Active Substance: PREDNISOLONE
  5. CYCLOPHOSPHAMIDE [Concomitant]
     Active Substance: CYCLOPHOSPHAMIDE

REACTIONS (2)
  - Treatment failure [Unknown]
  - No adverse event [Unknown]
